FAERS Safety Report 5833810-4 (Version None)
Quarter: 2008Q3

REPORT INFORMATION
  Report Type: 
  Country: None (occurrence: None)
  Receive Date: 20080804
  Receipt Date: 20080804
  Transmission Date: 20090109
  Serious: No
  Sender: FDA-Public Use
  Company Number: None

PATIENT
  Age: 42 Year
  Sex: Female
  Weight: 66.6788 kg

DRUGS (3)
  1. LEVAQUIN [Suspect]
     Indication: SINUSITIS
     Dosage: 750 1XDAY PO
     Route: 048
     Dates: start: 20080101, end: 20080220
  2. LEVAQUIN [Suspect]
     Dosage: 500 1XDAY PO
     Route: 048
  3. PREDNISONE TAB [Concomitant]

REACTIONS (9)
  - ACTIVITIES OF DAILY LIVING IMPAIRED [None]
  - ARTHRALGIA [None]
  - DRUG INEFFECTIVE [None]
  - EPICONDYLITIS [None]
  - GAIT DISTURBANCE [None]
  - MYALGIA [None]
  - ROTATOR CUFF SYNDROME [None]
  - SLEEP DISORDER DUE TO GENERAL MEDICAL CONDITION, INSOMNIA TYPE [None]
  - TENOSYNOVITIS [None]
